FAERS Safety Report 25129692 (Version 4)
Quarter: 2025Q2

REPORT INFORMATION
  Report Type: Report from Study
  Country: US (occurrence: US)
  Receive Date: 20250327
  Receipt Date: 20250521
  Transmission Date: 20250717
  Serious: Yes (Hospitalization)
  Sender: PFIZER
  Company Number: US-PFIZER INC-202500023449

PATIENT
  Age: 52 Year
  Sex: Female

DRUGS (24)
  1. BRAFTOVI [Suspect]
     Active Substance: ENCORAFENIB
     Dosage: TAKE 6 CAPSULES DAILY
     Route: 048
     Dates: start: 20250117
  2. BRAFTOVI [Suspect]
     Active Substance: ENCORAFENIB
     Dosage: 75MG CAP TAKE SIX CAPSULES 450MG BY MOUTH DAILY
     Route: 048
     Dates: start: 20250117
  3. BRAFTOVI [Suspect]
     Active Substance: ENCORAFENIB
     Dosage: TAKE 450 MG SIX CAPSULES BY MOUTH DAILY
     Route: 048
     Dates: start: 20250117, end: 20250224
  4. BRAFTOVI [Suspect]
     Active Substance: ENCORAFENIB
     Dosage: DOSE REDUCTION ONE LEVEL FOR ENCORAFENIB+BINIMETINIB
     Route: 048
     Dates: start: 20250122
  5. BRAFTOVI [Suspect]
     Active Substance: ENCORAFENIB
     Dosage: TAKE 450 MG SIX CAPSULES BY MOUTH DAILY
     Route: 048
     Dates: end: 20250224
  6. MEKTOVI [Suspect]
     Active Substance: BINIMETINIB
     Dosage: 3 TABLETS EVERY 12 HOURS
     Route: 048
     Dates: start: 20250117
  7. MEKTOVI [Suspect]
     Active Substance: BINIMETINIB
     Dosage: TAKE 3 TABLETS BY MOUTH EVERY 12 HOURS
     Route: 048
     Dates: start: 20250117
  8. MEKTOVI [Suspect]
     Active Substance: BINIMETINIB
     Dosage: DOSE REDUCTION ONE LEVEL FOR ENCORAFENIB+BINIMETINIB
     Route: 048
     Dates: start: 20250122
  9. MEKTOVI [Suspect]
     Active Substance: BINIMETINIB
     Dosage: TAKE 3 TABLETS BY MOUTH EVERY 12 HOURS
     Route: 048
     Dates: end: 20250224
  10. ALPRAZOLAM [Concomitant]
     Active Substance: ALPRAZOLAM
  11. ALLOPURINOL [Concomitant]
     Active Substance: ALLOPURINOL
  12. ESCITALOPRAM [Concomitant]
     Active Substance: ESCITALOPRAM OXALATE
  13. EZETIMIBE [Concomitant]
     Active Substance: EZETIMIBE
  14. LEVOTHYROXINE SODIUM [Concomitant]
     Active Substance: LEVOTHYROXINE SODIUM
  15. LISINOPRIL [Concomitant]
     Active Substance: LISINOPRIL
  16. PANTOPRAZOLE [Concomitant]
     Active Substance: PANTOPRAZOLE
  17. PREDNISONE [Concomitant]
     Active Substance: PREDNISONE
  18. PRENATAL [ASCORBIC ACID;FERROUS FUMARATE;FOLIC ACID;RETINOL] [Concomitant]
  19. PROPRANOLOL HYDROCHLORIDE [Concomitant]
     Active Substance: PROPRANOLOL HYDROCHLORIDE
  20. VITAMIN D NOS [Concomitant]
     Active Substance: CHOLECALCIFEROL\ERGOCALCIFEROL
  21. MORPHINE SULFATE [Concomitant]
     Active Substance: MORPHINE SULFATE
  22. GABAPENTIN [Concomitant]
     Active Substance: GABAPENTIN
  23. RETINOL [Concomitant]
     Active Substance: RETINOL
  24. POLYETHYLENE GLYCOL 3350 [Concomitant]
     Active Substance: POLYETHYLENE GLYCOL 3350

REACTIONS (4)
  - Platelet count decreased [Unknown]
  - Dehydration [Unknown]
  - Haemoglobin decreased [Unknown]
  - Pyrexia [Unknown]

NARRATIVE: CASE EVENT DATE: 20250101
